FAERS Safety Report 19274294 (Version 1)
Quarter: 2021Q2

REPORT INFORMATION
  Report Type: Spontaneous
  Country: US (occurrence: US)
  Receive Date: 20210519
  Receipt Date: 20210519
  Transmission Date: 20210717
  Serious: No
  Sender: FDA-Public Use
  Company Number: None

PATIENT
  Age: 58 Year
  Sex: Male
  Weight: 87.75 kg

DRUGS (1)
  1. PREDNISONE 50 MG [Suspect]
     Active Substance: PREDNISONE
     Indication: CONTRAST MEDIA ALLERGY
     Route: 048
     Dates: start: 20210517, end: 20210518

REACTIONS (1)
  - Hiccups [None]

NARRATIVE: CASE EVENT DATE: 20210518
